FAERS Safety Report 9307675 (Version 1)
Quarter: 2013Q2

REPORT INFORMATION
  Report Type: Spontaneous
  Country: US (occurrence: US)
  Receive Date: 20130524
  Receipt Date: 20130524
  Transmission Date: 20140414
  Serious: Yes (Other)
  Sender: FDA-Public Use
  Company Number: US-BAYER-2013-064465

PATIENT
  Sex: Female

DRUGS (2)
  1. YAZ [Suspect]
     Dosage: UNK
     Dates: start: 20071001, end: 20090301
  2. YASMIN [Suspect]
     Dosage: UNK
     Dates: start: 20071001, end: 20090301

REACTIONS (6)
  - Gallbladder injury [None]
  - Pain [None]
  - Injury [None]
  - Emotional distress [None]
  - Anhedonia [None]
  - Pain [None]
